FAERS Safety Report 4883861-1 (Version None)
Quarter: 2006Q1

REPORT INFORMATION
  Report Type: 
  Country: None (occurrence: None)
  Receive Date: 20060113
  Receipt Date: 20051223
  Transmission Date: 20060701
  Serious: Yes (Hospitalization, Other)
  Sender: FDA-Public Use
  Company Number: US200512004073

PATIENT
  Age: 54 Year
  Sex: Female

DRUGS (2)
  1. HUMALOG [Suspect]
     Dosage: SEE IMAGE
     Dates: start: 19960101
  2. HUMALOG [Suspect]
     Dosage: SEE IMAGE
     Dates: start: 19960101

REACTIONS (15)
  - ARTHROPATHY [None]
  - BLISTER [None]
  - BLOOD GLUCOSE INCREASED [None]
  - DEVICE FAILURE [None]
  - DIABETIC COMPLICATION [None]
  - DRUG INEFFECTIVE [None]
  - IMPAIRED HEALING [None]
  - INCORRECT DOSE ADMINISTERED [None]
  - LEG AMPUTATION [None]
  - NEUROPATHIC ARTHROPATHY [None]
  - OSTEOMYELITIS [None]
  - PHARMACEUTICAL PRODUCT COMPLAINT [None]
  - STAPHYLOCOCCAL INFECTION [None]
  - STRESS FRACTURE [None]
  - THERMAL BURN [None]
